FAERS Safety Report 15651431 (Version 2)
Quarter: 2019Q2

REPORT INFORMATION
  Report Type: Spontaneous
  Country: US (occurrence: US)
  Receive Date: 20181123
  Receipt Date: 20190612
  Transmission Date: 20190711
  Serious: No
  Sender: FDA-Public Use
  Company Number: US-SA-2018SA319165

PATIENT
  Age: 78 Year
  Sex: Female

DRUGS (1)
  1. DUPIXENT [Suspect]
     Active Substance: DUPILUMAB
     Indication: DERMATITIS ATOPIC
     Dosage: 300 MG, QOW
     Route: 058
     Dates: start: 20181005

REACTIONS (9)
  - Pruritus [Unknown]
  - Eye swelling [Unknown]
  - Eye pruritus [Unknown]
  - Injection site pain [Unknown]
  - Injection site pruritus [Unknown]
  - Sleep deficit [Unknown]
  - Rash pustular [Unknown]
  - Drug ineffective [Unknown]
  - Skin lesion [Unknown]
